FAERS Safety Report 15280861 (Version 1)
Quarter: 2018Q3

REPORT INFORMATION
  Report Type: Spontaneous
  Country: GB (occurrence: GB)
  Receive Date: 20180815
  Receipt Date: 20180815
  Transmission Date: 20181010
  Serious: Yes (Other)
  Sender: FDA-Public Use
  Company Number: GB-TEVA-2018-GB-941584

PATIENT
  Age: 66 Year
  Sex: Male
  Weight: 80.73 kg

DRUGS (7)
  1. OMEPRAZOLE. [Concomitant]
     Active Substance: OMEPRAZOLE
     Route: 065
  2. DIGITOXIN [Concomitant]
     Active Substance: DIGITOXIN
     Route: 065
  3. WARFARIN [Concomitant]
     Active Substance: WARFARIN
     Route: 065
  4. BISOPROLOL FUMARATE. [Concomitant]
     Active Substance: BISOPROLOL FUMARATE
     Route: 065
  5. CHLORAMBUCIL [Concomitant]
     Active Substance: CHLORAMBUCIL
     Route: 065
  6. LOFEPRAMINE HYDROCHLORIDE [Concomitant]
     Active Substance: LOFEPRAMINE HYDROCHLORIDE
     Route: 065
  7. TERBINAFINE. [Suspect]
     Active Substance: TERBINAFINE
     Indication: TINEA PEDIS
     Route: 048
     Dates: start: 20180621, end: 20180705

REACTIONS (3)
  - Inflammation [Recovering/Resolving]
  - Rash pustular [Recovering/Resolving]
  - Rash [Recovering/Resolving]

NARRATIVE: CASE EVENT DATE: 20180623
